FAERS Safety Report 16044181 (Version 2)
Quarter: 2019Q1

REPORT INFORMATION
  Report Type: Spontaneous
  Country: US (occurrence: US)
  Receive Date: 20190306
  Receipt Date: 20190309
  Transmission Date: 20190418
  Serious: Yes (Other)
  Sender: FDA-Public Use
  Company Number: US-GLAXOSMITHKLINE-US2019039239

PATIENT
  Age: 65 Year
  Sex: Female

DRUGS (1)
  1. LOVAZA [Suspect]
     Active Substance: OMEGA-3-ACID ETHYL ESTERS
     Indication: PRODUCT USED FOR UNKNOWN INDICATION
     Dosage: UNK UNK, U
     Dates: start: 2015, end: 20190214

REACTIONS (7)
  - Breast cancer [Unknown]
  - Cataract [Unknown]
  - Urinary tract disorder [Unknown]
  - Thyroid disorder [Unknown]
  - Lung neoplasm malignant [Unknown]
  - Urine odour abnormal [Recovered/Resolved]
  - Eructation [Unknown]

NARRATIVE: CASE EVENT DATE: 201409
